FAERS Safety Report 18098209 (Version 1)
Quarter: 2020Q3

REPORT INFORMATION
  Report Type: Spontaneous
  Country: US (occurrence: US)
  Receive Date: 20200731
  Receipt Date: 20200731
  Transmission Date: 20201103
  Serious: No
  Sender: FDA-Public Use
  Company Number: US-JNJFOC-20200740286

PATIENT

DRUGS (1)
  1. PREZCOBIX [Suspect]
     Active Substance: COBICISTAT\DARUNAVIR ETHANOLATE
     Indication: HIV INFECTION
     Dosage: ?PREZCOBIX?(DARUNAVIR?800?MG/COBICISTAT?150?MG)
     Route: 048

REACTIONS (1)
  - Weight increased [Unknown]
